FAERS Safety Report 16158167 (Version 3)
Quarter: 2019Q4

REPORT INFORMATION
  Report Type: Spontaneous
  Country: US (occurrence: US)
  Receive Date: 20190404
  Receipt Date: 20191226
  Transmission Date: 20200122
  Serious: Yes (Death, Hospitalization)
  Sender: FDA-Public Use
  Company Number: US-JNJFOC-20190403133

PATIENT
  Age: 82 Year
  Sex: Female
  Weight: 74.8 kg

DRUGS (6)
  1. XARELTO [Suspect]
     Active Substance: RIVAROXABAN
     Indication: CEREBROVASCULAR ACCIDENT PROPHYLAXIS
  2. XARELTO [Suspect]
     Active Substance: RIVAROXABAN
     Indication: THROMBOSIS PROPHYLAXIS
  3. XARELTO [Suspect]
     Active Substance: RIVAROXABAN
     Indication: DEEP VEIN THROMBOSIS
  4. ASPRIN [Suspect]
     Active Substance: ASPIRIN
     Indication: CORONARY ARTERY DISEASE
     Dosage: 81 MG TABLET, TILL OCT-2014
     Route: 065
  5. XARELTO [Suspect]
     Active Substance: RIVAROXABAN
     Indication: PULMONARY EMBOLISM
  6. XARELTO [Suspect]
     Active Substance: RIVAROXABAN
     Indication: ATRIAL FIBRILLATION
     Dosage: TILL OCT-2014
     Route: 048

REACTIONS (2)
  - Diverticulum intestinal [Fatal]
  - Lower gastrointestinal haemorrhage [Fatal]

NARRATIVE: CASE EVENT DATE: 201410
